FAERS Safety Report 5964041-5 (Version None)
Quarter: 2008Q4

REPORT INFORMATION
  Report Type: 
  Country: None (occurrence: None)
  Receive Date: 20081124
  Receipt Date: 20081113
  Transmission Date: 20090506
  Serious: Yes (Other)
  Sender: FDA-Public Use
  Company Number: CA-JNJCH-2008052006

PATIENT
  Sex: Male

DRUGS (3)
  1. LISTERINE WHITENING PRE-BRUSH RINSE [Suspect]
     Indication: DENTAL CARE
     Dosage: TEXT:15ML TWICE DAILY
     Route: 048
     Dates: start: 20080920, end: 20081010
  2. WARFARIN SODIUM [Concomitant]
     Indication: HEART VALVE REPLACEMENT
     Dosage: TEXT:6.5 MG, UNSPECIFIED
     Route: 065
  3. LIPITOR [Concomitant]
     Indication: BLOOD CHOLESTEROL
     Dosage: TEXT:20 MG, UNSPECIFIED
     Route: 065
     Dates: start: 20020101

REACTIONS (4)
  - AGEUSIA [None]
  - APPLICATION SITE IRRITATION [None]
  - TONGUE DISCOLOURATION [None]
  - TOOTH DISCOLOURATION [None]
